FAERS Safety Report 9083373 (Version 1)
Quarter: 2013Q1

REPORT INFORMATION
  Report Type: Report from Study
  Country: US (occurrence: US)
  Receive Date: 20130131
  Receipt Date: 20130131
  Transmission Date: 20140127
  Serious: No
  Sender: FDA-Public Use
  Company Number: US-ABBOTT-12P-163-0993938-00

PATIENT
  Sex: Male
  Weight: 70.37 kg

DRUGS (4)
  1. HUMIRA [Suspect]
     Indication: CROHN^S DISEASE
     Route: 058
     Dates: start: 20121003
  2. INFLUENZA VIRUS VACCINE NOS [Suspect]
     Indication: PROPHYLAXIS
     Dates: start: 20120930, end: 20120930
  3. 6MP (NON ABBOTT) [Concomitant]
     Indication: CROHN^S DISEASE
     Dates: start: 20120926
  4. FLAGYL [Concomitant]
     Indication: CROHN^S DISEASE
     Dates: start: 20120926

REACTIONS (1)
  - Rash pruritic [Recovering/Resolving]
